FAERS Safety Report 18257530 (Version 1)
Quarter: 2020Q3

REPORT INFORMATION
  Report Type: Spontaneous
  Country: US (occurrence: US)
  Receive Date: 20200911
  Receipt Date: 20200911
  Transmission Date: 20201103
  Serious: No
  Sender: FDA-Public Use
  Company Number: US-TEVA-2020-US-1826623

PATIENT
  Age: 67 Year
  Sex: Female
  Weight: 47.62 kg

DRUGS (6)
  1. SINGULAIR [Concomitant]
     Active Substance: MONTELUKAST SODIUM
     Dates: start: 202007
  2. ALLERGEN EXTRACTS [Concomitant]
     Active Substance: ALLERGENIC EXTRACTS
     Dates: start: 202008
  3. FEXOFENADINE [Suspect]
     Active Substance: FEXOFENADINE HYDROCHLORIDE
     Indication: SEASONAL ALLERGY
     Dosage: 60 MILLIGRAM DAILY; FEXOFENADINE 60 MG 425 (FEXOFENADINE) TABLET {LOT # 0CE3255 (25F079); EXP.DT. SE
     Route: 048
     Dates: start: 201807, end: 20200828
  4. CYTOMEL [Concomitant]
     Active Substance: LIOTHYRONINE SODIUM
     Dates: start: 2000
  5. SYNTHROID [Concomitant]
     Active Substance: LEVOTHYROXINE SODIUM
     Dates: start: 2000
  6. FEXOFENADINE [Suspect]
     Active Substance: FEXOFENADINE HYDROCHLORIDE
     Indication: ALLERGY TO ANIMAL
     Dosage: 1/2 TABLET, SINGLE; ORAL
     Route: 048
     Dates: start: 20200829, end: 20200829

REACTIONS (6)
  - Product administered to patient of inappropriate age [Unknown]
  - Incorrect dose administered [Unknown]
  - Feeling abnormal [Recovered/Resolved]
  - Dizziness [Recovered/Resolved]
  - Fatigue [Recovered/Resolved]
  - Wrong technique in product usage process [Unknown]

NARRATIVE: CASE EVENT DATE: 202007
